FAERS Safety Report 15948779 (Version 3)
Quarter: 2019Q2

REPORT INFORMATION
  Report Type: Spontaneous
  Country: US (occurrence: US)
  Receive Date: 20190211
  Receipt Date: 20190409
  Transmission Date: 20190711
  Serious: Yes (Other)
  Sender: FDA-Public Use
  Company Number: US-STRONGBRIDGE BIOPHARMA-2019-STR-000029

PATIENT
  Age: 52 Year
  Sex: Female

DRUGS (1)
  1. KEVEYIS [Suspect]
     Active Substance: DICHLORPHENAMIDE
     Indication: FAMILIAL PERIODIC PARALYSIS
     Dosage: 50 MG, BID
     Route: 048
     Dates: start: 20170501

REACTIONS (10)
  - Cyst [Unknown]
  - Paraesthesia [Unknown]
  - Respiratory tract infection [Recovered/Resolved]
  - Fatigue [Recovered/Resolved]
  - Urinary tract infection [Unknown]
  - Muscular weakness [Recovered/Resolved]
  - Memory impairment [Unknown]
  - Urine abnormality [Recovered/Resolved]
  - Insomnia [Not Recovered/Not Resolved]
  - Furuncle [Unknown]

NARRATIVE: CASE EVENT DATE: 201812
